FAERS Safety Report 4958988-6 (Version None)
Quarter: 2006Q1

REPORT INFORMATION
  Report Type: 
  Country: None (occurrence: None)
  Receive Date: 20060331
  Receipt Date: 20060213
  Transmission Date: 20060701
  Serious: Yes (Death)
  Sender: FDA-Public Use
  Company Number: PHNR2006AU00530

PATIENT
  Sex: Male

DRUGS (6)
  1. SERTRALINE [Concomitant]
  2. DIGOXIN [Concomitant]
  3. VALPROATE SODIUM [Concomitant]
  4. OLANZAPINE [Concomitant]
  5. TERBUTALINE [Concomitant]
  6. CLOZARIL [Suspect]
     Indication: SCHIZOPHRENIA
     Dosage: 12-125 MG, DAILY
     Dates: start: 19980318

REACTIONS (1)
  - MYOCARDIAL INFARCTION [None]
